FAERS Safety Report 14375414 (Version 1)
Quarter: 2018Q1

REPORT INFORMATION
  Report Type: Spontaneous
  Country: TR (occurrence: TR)
  Receive Date: 20180111
  Receipt Date: 20180111
  Transmission Date: 20180509
  Serious: Yes (Other)
  Sender: FDA-Public Use
  Company Number: TR-GUERBET-TR-20180004

PATIENT
  Age: 38 Year
  Sex: Male

DRUGS (1)
  1. DOTAREM [Suspect]
     Active Substance: GADOTERATE MEGLUMINE
     Indication: NUCLEAR MAGNETIC RESONANCE IMAGING WHOLE BODY
     Route: 050

REACTIONS (6)
  - Generalised tonic-clonic seizure [Recovered/Resolved]
  - Aggression [Recovered/Resolved]
  - Agitation [Recovered/Resolved]
  - Medication residue present [Recovered/Resolved]
  - Aphasia [Recovered/Resolved]
  - Incorrect route of drug administration [Recovered/Resolved]
